FAERS Safety Report 13972805 (Version 1)
Quarter: 2017Q3

REPORT INFORMATION
  Report Type: Spontaneous
  Country: US (occurrence: US)
  Receive Date: 20170914
  Receipt Date: 20170914
  Transmission Date: 20171128
  Serious: No
  Sender: FDA-Public Use
  Company Number: US-LPDUSPRD-20160807

PATIENT
  Sex: Female

DRUGS (1)
  1. INJECTAFER [Suspect]
     Active Substance: FERRIC CARBOXYMALTOSE
     Dosage: DOSE UNKNOWN
     Route: 065
     Dates: start: 20160817, end: 20160824

REACTIONS (5)
  - Drug ineffective [Unknown]
  - General physical health deterioration [Unknown]
  - Malaise [Unknown]
  - Fatigue [Unknown]
  - Hypersomnia [Unknown]
